FAERS Safety Report 18887845 (Version 3)
Quarter: 2021Q2

REPORT INFORMATION
  Report Type: Report from Study
  Country: US (occurrence: US)
  Receive Date: 20210212
  Receipt Date: 20210608
  Transmission Date: 20210717
  Serious: No
  Sender: FDA-Public Use
  Company Number: NVSC2021US025660

PATIENT
  Sex: Female

DRUGS (1)
  1. COSENTYX [Suspect]
     Active Substance: SECUKINUMAB
     Indication: PATERNAL EXPOSURE DURING PREGNANCY
     Dosage: EXPOSURE VIA PARTNER
     Route: 050

REACTIONS (1)
  - Exposure via partner [Unknown]
